FAERS Safety Report 9398408 (Version 1)
Quarter: 2013Q3

REPORT INFORMATION
  Report Type: Report from Study
  Country: US (occurrence: US)
  Receive Date: 20130712
  Receipt Date: 20130712
  Transmission Date: 20140515
  Serious: Yes (Hospitalization)
  Sender: FDA-Public Use
  Company Number: US-PFIZER INC-2013197102

PATIENT
  Age: 78 Year
  Sex: Male
  Weight: 97.7 kg

DRUGS (2)
  1. TEMSIROLIMUS [Suspect]
     Indication: NON-HODGKIN^S LYMPHOMA
     Dosage: 20 MG, CYCLIC (DAYS 1, 8, 15, 22)
     Route: 042
     Dates: start: 20120516, end: 20120905
  2. VELCADE [Suspect]
     Indication: NON-HODGKIN^S LYMPHOMA
     Dosage: 2.9 MG, CYCLIC (DAYS 1, 8, 15, 22)
     Route: 042
     Dates: start: 20120516, end: 20120905

REACTIONS (3)
  - Pseudomonal sepsis [Unknown]
  - Febrile neutropenia [Unknown]
  - Bronchitis [Unknown]
